FAERS Safety Report 6585396-7 (Version None)
Quarter: 2010Q1

REPORT INFORMATION
  Report Type: 
  Country: None (occurrence: None)
  Receive Date: 20100217
  Receipt Date: 20100209
  Transmission Date: 20100710
  Serious: Yes (Other)
  Sender: FDA-Public Use
  Company Number: A0838057A

PATIENT
  Age: 47 Year
  Sex: Female
  Weight: 75 kg

DRUGS (4)
  1. LAMICTAL [Suspect]
     Indication: EPILEPSY
     Dosage: 200MG TWICE PER DAY
     Route: 048
     Dates: start: 20090101
  2. CIPROFLOXACIN [Concomitant]
  3. CLONAZEPAM [Concomitant]
     Dosage: .3U AT NIGHT
     Route: 048
  4. CARDURA [Concomitant]
     Dosage: 1.5TAB PER DAY
     Route: 048

REACTIONS (1)
  - OSTEONECROSIS [None]
